FAERS Safety Report 10076865 (Version 2)
Quarter: 2014Q2

REPORT INFORMATION
  Report Type: Spontaneous
  Country: US (occurrence: US)
  Receive Date: 20140414
  Receipt Date: 20140512
  Transmission Date: 20141212
  Serious: Yes (Other)
  Sender: FDA-Public Use
  Company Number: US-GLAXOSMITHKLINE-A1035981A

PATIENT
  Sex: Female
  Weight: 69.1 kg

DRUGS (1)
  1. AVANDIA [Suspect]
     Indication: DIABETES MELLITUS
     Route: 048
     Dates: start: 2003, end: 2005

REACTIONS (4)
  - Cardiovascular disorder [Unknown]
  - Cardiac disorder [Unknown]
  - Myocardial infarction [Unknown]
  - Coronary arterial stent insertion [Unknown]
